FAERS Safety Report 20286414 (Version 1)
Quarter: 2022Q1

REPORT INFORMATION
  Report Type: Spontaneous
  Country: CN (occurrence: CN)
  Receive Date: 20220103
  Receipt Date: 20220103
  Transmission Date: 20220423
  Serious: Yes (Other)
  Sender: FDA-Public Use
  Company Number: CN-BAXTER-2021BAX042337

PATIENT
  Age: 70 Year
  Sex: Female

DRUGS (4)
  1. SODIUM CHLORIDE [Suspect]
     Active Substance: SODIUM CHLORIDE
     Indication: Haemoptysis
     Dosage: 0.9% SODIUM CHLORIDE 100 ML + PIPERACILLIN SODIUM AND TAZOBACTAM SODIUM 2.5G BID
     Route: 041
     Dates: start: 20211222, end: 20211222
  2. SODIUM CHLORIDE [Suspect]
     Active Substance: SODIUM CHLORIDE
     Indication: Bronchiectasis
  3. PIPERACILLIN AND TAZOBACTAM [Suspect]
     Active Substance: PIPERACILLIN SODIUM\TAZOBACTAM SODIUM
     Indication: Haemoptysis
     Dosage: 0.9% SODIUM CHLORIDE 100ML + PIPERACILLIN SODIUM AND TAZOBACTAM SODIUM 2.5G BID
     Route: 041
     Dates: start: 20211222, end: 20211222
  4. PIPERACILLIN AND TAZOBACTAM [Suspect]
     Active Substance: PIPERACILLIN SODIUM\TAZOBACTAM SODIUM
     Indication: Bronchiectasis

REACTIONS (2)
  - Respiratory arrest [Recovering/Resolving]
  - Larynx irritation [Recovering/Resolving]

NARRATIVE: CASE EVENT DATE: 20211222
